FAERS Safety Report 5207699-0 (Version None)
Quarter: 2007Q1

REPORT INFORMATION
  Report Type: 
  Country: None (occurrence: None)
  Receive Date: 20070112
  Receipt Date: 20070102
  Transmission Date: 20070707
  Serious: Yes (Other)
  Sender: FDA-Public Use
  Company Number: US-PFIZER INC-2007001432

PATIENT
  Age: 50 Year
  Sex: Male
  Weight: 88.9 kg

DRUGS (3)
  1. CHANTIX [Suspect]
     Indication: EX-SMOKER
     Dates: start: 20070101, end: 20070101
  2. MS CONTIN [Concomitant]
  3. VALIUM [Concomitant]

REACTIONS (3)
  - ABNORMAL DREAMS [None]
  - MENTAL IMPAIRMENT [None]
  - PAIN [None]
